FAERS Safety Report 8431868-X (Version None)
Quarter: 2012Q2

REPORT INFORMATION
  Report Type: 
  Country: None (occurrence: None)
  Receive Date: 20120607
  Receipt Date: 20120607
  Transmission Date: 20120825
  Serious: Yes (Hospitalization)
  Sender: FDA-Public Use
  Company Number: None

PATIENT
  Age: 49 Year
  Sex: Male
  Weight: 82.1011 kg

DRUGS (1)
  1. ACTEMRA [Suspect]
     Indication: CASTLEMAN'S DISEASE
     Dosage: 658 MG, MONTHLY, IV DRIP
     Route: 041
     Dates: start: 20110925, end: 20120120

REACTIONS (6)
  - HYPERHIDROSIS [None]
  - UNRESPONSIVE TO STIMULI [None]
  - BLOOD PRESSURE DECREASED [None]
  - BRUXISM [None]
  - HEART RATE INCREASED [None]
  - VOMITING [None]
